FAERS Safety Report 5485733-0 (Version None)
Quarter: 2008Q1

REPORT INFORMATION
  Report Type: 
  Country: None (occurrence: None)
  Receive Date: 20071011
  Receipt Date: 20071011
  Transmission Date: 20080703
  Serious: Yes (Disabling, Other)
  Sender: FDA-Public Use
  Company Number: None

PATIENT
  Age: 48 Year
  Sex: Female
  Weight: 72.5755 kg

DRUGS (3)
  1. CREST PRO-HEALTH MOUTH RINSE [Suspect]
     Indication: DENTAL PLAQUE
     Dosage: 20ML  1-2 TIMES DAILY PO
     Route: 048
     Dates: start: 20070701, end: 20071010
  2. CREST PRO-HEALTH MOUTH RINSE [Suspect]
     Indication: GINGIVITIS
     Dosage: 20ML  1-2 TIMES DAILY PO
     Route: 048
     Dates: start: 20070701, end: 20071010
  3. CREST PRO-HEALTH MOUTH RINSE [Suspect]
     Indication: PROPHYLAXIS
     Dosage: 20ML  1-2 TIMES DAILY PO
     Route: 048
     Dates: start: 20070701, end: 20071010

REACTIONS (2)
  - PHARMACEUTICAL PRODUCT COMPLAINT [None]
  - TOOTH DISCOLOURATION [None]
